FAERS Safety Report 17703731 (Version 1)
Quarter: 2020Q2

REPORT INFORMATION
  Report Type: Spontaneous
  Country: US (occurrence: US)
  Receive Date: 20200423
  Receipt Date: 20200423
  Transmission Date: 20200714
  Serious: No
  Sender: FDA-Public Use
  Company Number: None

PATIENT
  Sex: Female

DRUGS (1)
  1. NORDITROPIN [Suspect]
     Active Substance: SOMATROPIN
     Indication: TURNER^S SYNDROME
     Dosage: ?          OTHER FREQUENCY:NIGHTLY AT BEDTIME;?
     Route: 058
     Dates: start: 20180315

REACTIONS (2)
  - Hospitalisation [None]
  - Therapy interrupted [None]
